FAERS Safety Report 10183257 (Version 1)
Quarter: 2014Q2

REPORT INFORMATION
  Report Type: Spontaneous
  Country: US (occurrence: None)
  Receive Date: 20140416
  Receipt Date: 20140416
  Transmission Date: 20141212
  Serious: No
  Sender: FDA-Public Use
  Company Number: 163-POMAL-13114784

PATIENT
  Age: 88 Year
  Sex: Female
  Weight: 60.3 kg

DRUGS (4)
  1. POMALYST [Suspect]
     Indication: PLASMA CELL MYELOMA
     Dosage: 2 MG, 21 IN 21 D, PO
     Route: 048
     Dates: start: 20131022
  2. DEXAMETHASONE(DEXAMETHASONE) [Concomitant]
  3. TYLENOL (PARACETAMOL) [Concomitant]
  4. CHLORZOXAZONE [Concomitant]

REACTIONS (4)
  - Nasopharyngitis [None]
  - Rash [None]
  - Dyspnoea [None]
  - Plasma cell myeloma [None]
